FAERS Safety Report 25030139 (Version 1)
Quarter: 2025Q1

REPORT INFORMATION
  Report Type: Spontaneous
  Country: GB (occurrence: GB)
  Receive Date: 20250303
  Receipt Date: 20250303
  Transmission Date: 20250409
  Serious: Yes (Other)
  Sender: ADVANZ PHARMA
  Company Number: GB-MHRA-WEBRADR-202502181648291300-TVDNQ

PATIENT

DRUGS (1)
  1. PREDNISOLONE [Suspect]
     Active Substance: PREDNISOLONE

REACTIONS (1)
  - White blood cell count increased [Recovering/Resolving]
